FAERS Safety Report 4594457-3 (Version None)
Quarter: 2005Q1

REPORT INFORMATION
  Report Type: 
  Country: None (occurrence: None)
  Receive Date: 20050301
  Receipt Date: 20040309
  Transmission Date: 20050727
  Serious: No
  Sender: FDA-Public Use
  Company Number: US-GLAXOSMITHKLINE-A0501969A

PATIENT
  Age: 50 Year
  Sex: Female

DRUGS (5)
  1. VALTREX [Suspect]
     Indication: HERPES SIMPLEX
     Dosage: 500MG TWICE PER DAY
     Route: 048
     Dates: start: 20031228
  2. ADVAIR DISKUS 100/50 [Concomitant]
  3. ALBUTEROL [Concomitant]
  4. TRIAM/HCTZ [Concomitant]
  5. UNSPECIFIED MEDICATION [Concomitant]
     Dosage: 5MG PER DAY

REACTIONS (1)
  - DRUG INEFFECTIVE [None]
